FAERS Safety Report 21891877 (Version 2)
Quarter: 2023Q1

REPORT INFORMATION
  Report Type: Report from Study
  Country: IT (occurrence: IT)
  Receive Date: 20230120
  Receipt Date: 20230313
  Transmission Date: 20230418
  Serious: Yes (Hospitalization, Other)
  Sender: FDA-Public Use
  Company Number: None

PATIENT
  Age: 10 Year
  Sex: Male
  Weight: 30 kg

DRUGS (3)
  1. IFOSFAMIDE [Suspect]
     Active Substance: IFOSFAMIDE
     Indication: Osteosarcoma
     Dosage: 3210 MG/DAY FROM 07 TO 11/12/22
     Route: 042
     Dates: start: 20221207, end: 20221211
  2. MIFAMURTIDE [Suspect]
     Active Substance: MIFAMURTIDE
     Indication: Osteosarcoma
     Dosage: 2.14 MG/DAY ON 09.13.21 AND 28/12/22
     Route: 042
     Dates: start: 20221209, end: 20221228
  3. ENALAPRIL MALEATE [Concomitant]
     Active Substance: ENALAPRIL MALEATE
     Indication: Product used for unknown indication
     Dosage: 2.5 MG/DAY
     Route: 048
     Dates: start: 20221209, end: 20221213

REACTIONS (5)
  - Electrolyte imbalance [Recovered/Resolved]
  - Pancytopenia [Recovered/Resolved]
  - Vomiting [Recovered/Resolved]
  - Asthenia [Recovered/Resolved]
  - Pyrexia [Recovered/Resolved]

NARRATIVE: CASE EVENT DATE: 20221219
